FAERS Safety Report 25590892 (Version 1)
Quarter: 2025Q3

REPORT INFORMATION
  Report Type: Other
  Country: US (occurrence: US)
  Receive Date: 20250722
  Receipt Date: 20250722
  Transmission Date: 20251020
  Serious: Yes (Death, Life-Threatening, Hospitalization, Other)
  Sender: ZHEJIANG JINGXIN PHARMACEUTICAL
  Company Number: US-Zhejiang Jingxin Pharmaceutical Co., Ltd-2180946

PATIENT
  Age: 65 Year
  Sex: Female

DRUGS (7)
  1. LEVETIRACETAM [Suspect]
     Active Substance: LEVETIRACETAM
     Indication: Status epilepticus
  2. LACOSAMIDE [Suspect]
     Active Substance: LACOSAMIDE
  3. ATIVAN [Concomitant]
     Active Substance: LORAZEPAM
  4. MIDAZOLAM [Suspect]
     Active Substance: MIDAZOLAM
  5. PROPOFOL [Suspect]
     Active Substance: PROPOFOL
  6. PHENOBARBITAL [Suspect]
     Active Substance: PHENOBARBITAL
  7. FOSPHENYTOIN SODIUM [Suspect]
     Active Substance: FOSPHENYTOIN SODIUM

REACTIONS (3)
  - Myocardial depression [Fatal]
  - Atrioventricular block [Fatal]
  - Cardiac arrest [Fatal]
